FAERS Safety Report 17583511 (Version 4)
Quarter: 2020Q4

REPORT INFORMATION
  Report Type: Report from Study
  Country: ES (occurrence: ES)
  Receive Date: 20200326
  Receipt Date: 20201224
  Transmission Date: 20210113
  Serious: Yes (Hospitalization, Other)
  Sender: FDA-Public Use
  Company Number: ES-ROCHE-2569702

PATIENT
  Age: 79 Year
  Sex: Male
  Weight: 80 kg

DRUGS (9)
  1. ENALAPRIL [Concomitant]
     Active Substance: ENALAPRIL
  2. CABOZANTINIB [Suspect]
     Active Substance: CABOZANTINIB
     Indication: HORMONE-REFRACTORY PROSTATE CANCER
     Dosage: ON 28/FEB/2020, HE RECEIVED THE MOST RECENT DOSE OF CABOZANTINIB (40 MG) PRIOR TO ONSET OF HYPONATRE
     Route: 048
     Dates: start: 20200219
  3. CABOZANTINIB [Suspect]
     Active Substance: CABOZANTINIB
     Route: 048
  4. IDEOS [Concomitant]
     Active Substance: CALCIUM CARBONATE\CHOLECALCIFEROL
  5. INNOHEP [Concomitant]
     Active Substance: TINZAPARIN SODIUM
  6. BISOPROLOL FUMARATE. [Concomitant]
     Active Substance: BISOPROLOL FUMARATE
  7. ATEZOLIZUMAB. [Suspect]
     Active Substance: ATEZOLIZUMAB
     Indication: HORMONE-REFRACTORY PROSTATE CANCER
     Dosage: ON 25/MAR/2020, HE RECEIVED THE MOST RECENT DOSES OF ATEZOLIZUMAB PRIOR TO ONSET OF INFUSIONAL REACT
     Route: 042
     Dates: start: 20200219, end: 20200325
  8. SIMVASTATINA [Concomitant]
     Active Substance: SIMVASTATIN
  9. OMEPRAZOLE. [Concomitant]
     Active Substance: OMEPRAZOLE

REACTIONS (2)
  - Infusion related reaction [Recovered/Resolved]
  - Hyponatraemia [Recovered/Resolved with Sequelae]

NARRATIVE: CASE EVENT DATE: 20200229
